FAERS Safety Report 10034729 (Version 2)
Quarter: 2014Q2

REPORT INFORMATION
  Report Type: Spontaneous
  Country: US (occurrence: US)
  Receive Date: 20140325
  Receipt Date: 20140429
  Transmission Date: 20141212
  Serious: Yes (Congenital Anomaly, Other)
  Sender: FDA-Public Use
  Company Number: US-PFIZER INC-2014076448

PATIENT
  Sex: Female

DRUGS (5)
  1. ZOLOFT [Suspect]
     Indication: ANXIETY
     Dosage: UNK
     Route: 064
     Dates: start: 2004
  2. ZOLOFT [Suspect]
     Indication: DEPRESSION
  3. ZOLOFT [Suspect]
     Indication: AFFECTIVE DISORDER
  4. PRENATAL VITAMINS [Concomitant]
     Dosage: UNK
     Route: 064
  5. MILK THISTLE [Concomitant]
     Dosage: UNK
     Route: 064

REACTIONS (10)
  - Maternal exposure during pregnancy [Unknown]
  - Anal atresia [Unknown]
  - Limb malformation [Unknown]
  - Heart disease congenital [Unknown]
  - Atrial septal defect [Unknown]
  - Female genital tract fistula [Unknown]
  - Low birth weight baby [Unknown]
  - Congenital anomaly [Unknown]
  - Limb asymmetry [Unknown]
  - Premature baby [Unknown]
